FAERS Safety Report 5427369-3 (Version None)
Quarter: 2007Q3

REPORT INFORMATION
  Report Type: 
  Country: None (occurrence: None)
  Receive Date: 20070828
  Receipt Date: 20070820
  Transmission Date: 20080115
  Serious: Yes (Other)
  Sender: FDA-Public Use
  Company Number: FR-AVENTIS-200712682FR

PATIENT
  Age: 88 Year
  Sex: Female

DRUGS (9)
  1. TRIATEC                            /00885601/ [Suspect]
     Indication: HYPERTENSION
     Route: 048
     Dates: start: 20070627, end: 20070627
  2. TRIATEC                            /00885601/ [Suspect]
     Route: 048
     Dates: start: 20070628, end: 20070629
  3. LASIX [Suspect]
     Indication: HYPERTENSION
     Route: 048
     Dates: start: 20070622, end: 20070627
  4. PLAVIX [Concomitant]
  5. AMLODIPINE BESYLATE [Concomitant]
  6. DUPHALAC                           /00163401/ [Concomitant]
  7. ELISOR [Concomitant]
  8. LEVOTHYROXINE SODIUM [Concomitant]
  9. OSTRAM D3 [Concomitant]

REACTIONS (3)
  - BLOOD CREATININE INCREASED [None]
  - HYPERKALAEMIA [None]
  - RENAL FAILURE [None]
